FAERS Safety Report 21652958 (Version 1)
Quarter: 2022Q4

REPORT INFORMATION
  Report Type: Spontaneous
  Country: US (occurrence: None)
  Receive Date: 20221125
  Receipt Date: 20221125
  Transmission Date: 20230112
  Serious: No
  Sender: FDA-Public Use
  Company Number: None

PATIENT
  Sex: Male

DRUGS (1)
  1. SKYRIZI [Suspect]
     Active Substance: RISANKIZUMAB-RZAA
     Indication: Psoriasis
     Dosage: 150MG EVERY 12 WEEKS SUB-Q?
     Route: 058
     Dates: start: 202209

REACTIONS (4)
  - Drug ineffective [None]
  - Incorrect dose administered [None]
  - Wrong schedule [None]
  - Product use issue [None]
